FAERS Safety Report 5361109-1 (Version None)
Quarter: 2007Q2

REPORT INFORMATION
  Report Type: 
  Country: None (occurrence: None)
  Receive Date: 20070614
  Receipt Date: 20070604
  Transmission Date: 20071010
  Serious: Yes (Hospitalization)
  Sender: FDA-Public Use
  Company Number: MEDI-0005820

PATIENT
  Age: 65 Year
  Sex: Female
  Weight: 185 kg

DRUGS (9)
  1. ETHYOL [Suspect]
     Indication: NEOPLASM MALIGNANT
     Dosage: 500 MG, 5 IN 5 D, SUBCUTANEOUS
     Route: 058
     Dates: start: 20070515, end: 20070531
  2. RADIATION THERAPY [Concomitant]
  3. PRINIVIL [Concomitant]
  4. HYDROCHLOROTHIAZIDE [Concomitant]
  5. ZOCOR [Concomitant]
  6. COUMADIN [Concomitant]
  7. NORVASC [Concomitant]
  8. KYTRIL [Concomitant]
  9. HYDROMORPHONE HCL [Concomitant]

REACTIONS (7)
  - BLOOD PRESSURE DECREASED [None]
  - CHILLS [None]
  - DRUG ERUPTION [None]
  - HAEMATURIA [None]
  - MUCOSAL EROSION [None]
  - PYREXIA [None]
  - RADIATION INJURY [None]
